FAERS Safety Report 10461160 (Version 1)
Quarter: 2014Q3

REPORT INFORMATION
  Report Type: Spontaneous
  Country: US (occurrence: None)
  Receive Date: 20140917
  Receipt Date: 20140917
  Transmission Date: 20150326
  Serious: Yes (Disabling)
  Sender: FDA-Public Use
  Company Number: None

PATIENT
  Age: 45 Year
  Sex: Female
  Weight: 83.92 kg

DRUGS (1)
  1. LAMOTRIGINE. [Suspect]
     Active Substance: LAMOTRIGINE
     Indication: DEPRESSION
     Dosage: 4 PILLS ONCE DAILY TAKEN BY MOUTH
     Route: 048
     Dates: start: 20140819, end: 20140915

REACTIONS (4)
  - Product substitution issue [None]
  - Drug effect decreased [None]
  - Depressive symptom [None]
  - Drug dispensing error [None]

NARRATIVE: CASE EVENT DATE: 20140901
